FAERS Safety Report 10649618 (Version 1)
Quarter: 2014Q4

REPORT INFORMATION
  Report Type: Spontaneous
  Country: US (occurrence: None)
  Receive Date: 20141211
  Receipt Date: 20141211
  Transmission Date: 20150529
  Serious: Yes (Hospitalization)
  Sender: FDA-Public Use
  Company Number: None

PATIENT
  Age: 47 Year
  Sex: Female
  Weight: 70.76 kg

DRUGS (1)
  1. RELISTOR [Suspect]
     Active Substance: METHYLNALTREXONE BROMIDE
     Indication: CONSTIPATION
     Dosage: 12MG  X1  SQ
     Route: 058
     Dates: start: 20141111

REACTIONS (5)
  - Diarrhoea [None]
  - Abdominal pain [None]
  - Vomiting [None]
  - Muscle spasms [None]
  - Nausea [None]

NARRATIVE: CASE EVENT DATE: 20141111
